FAERS Safety Report 14978673 (Version 2)
Quarter: 2018Q2

REPORT INFORMATION
  Report Type: Other
  Country: US (occurrence: US)
  Receive Date: 20180606
  Receipt Date: 20180606
  Transmission Date: 20180711
  Serious: Yes (Other)
  Sender: FDA-Public Use
  Company Number: US-SHEFFIELD PHARMACEUTICALS, LLC-2049067

PATIENT
  Sex: Female

DRUGS (1)
  1. CVS ARTHRITIS PAIN RELIEF [Suspect]
     Active Substance: HISTAMINE DIHYDROCHLORIDE

REACTIONS (1)
  - Adverse drug reaction [None]
